FAERS Safety Report 6917520-8 (Version None)
Quarter: 2010Q3

REPORT INFORMATION
  Report Type: 
  Country: None (occurrence: None)
  Receive Date: 20100810
  Receipt Date: 20100803
  Transmission Date: 20110219
  Serious: Yes (Hospitalization)
  Sender: FDA-Public Use
  Company Number: US-B.I. PHARMACEUTICALS,INC./RIDGEFIELD-2010-BP-05990BP

PATIENT
  Age: 8 Year
  Sex: Male
  Weight: 32 kg

DRUGS (6)
  1. CATAPRES-TTS-1 [Suspect]
     Indication: ATTENTION DEFICIT/HYPERACTIVITY DISORDER
     Dosage: 0.1 MG
     Route: 061
  2. CATAPRES-TTS-1 [Suspect]
     Indication: ABNORMAL BEHAVIOUR
  3. CATAPRES-TTS-1 [Suspect]
     Indication: AUTISM
  4. GABAPENTIN [Concomitant]
     Dosage: 1200 MG
     Route: 048
  5. RISPERIDONE [Concomitant]
     Dosage: 6 MG
     Route: 048
  6. IMMUNE GLOBULIN INTRAVENOUS (HUMAN) [Concomitant]

REACTIONS (7)
  - ACCIDENTAL EXPOSURE [None]
  - BRADYCARDIA [None]
  - DEPRESSED LEVEL OF CONSCIOUSNESS [None]
  - HYPERTENSION [None]
  - HYPOTENSION [None]
  - SOMNOLENCE [None]
  - VOMITING [None]
